FAERS Safety Report 20038060 (Version 3)
Quarter: 2023Q1

REPORT INFORMATION
  Report Type: Report from Study
  Country: US (occurrence: US)
  Receive Date: 20211105
  Receipt Date: 20230203
  Transmission Date: 20230418
  Serious: Yes (Hospitalization)
  Sender: FDA-Public Use
  Company Number: US-BoehringerIngelheim-2020-BI-063812

PATIENT
  Age: 78 Year
  Sex: Male

DRUGS (16)
  1. OFEV [Suspect]
     Active Substance: NINTEDANIB
     Indication: Idiopathic pulmonary fibrosis
     Route: 048
     Dates: start: 20180129, end: 20201117
  2. OFEV [Suspect]
     Active Substance: NINTEDANIB
     Route: 048
     Dates: start: 20210119
  3. ARGININE HYDROCHLORIDE [Concomitant]
     Active Substance: ARGININE HYDROCHLORIDE
     Indication: Product used for unknown indication
     Route: 048
  4. Aspirin/Ecotrin 81 mg tablet [Concomitant]
     Indication: Product used for unknown indication
     Route: 048
  5. lipitor/Atorvastatin 80 mg tablet [Concomitant]
     Indication: Product used for unknown indication
     Route: 065
     Dates: start: 20210524
  6. vitamin D3/Cholecalciferol 50 mcg [Concomitant]
     Indication: Product used for unknown indication
     Route: 048
  7. vitamin b-12/cyanocobalamin 100 mcg [Concomitant]
     Indication: Product used for unknown indication
     Route: 048
  8. Trulicity 0.75 mg/0.5 ml per injection [Concomitant]
     Indication: Product used for unknown indication
     Dosage: 0.75 MG/0.5 ML PEN INJECTOR
     Route: 058
     Dates: start: 20210713
  9. Norco/ acetaminophen and hydrocodone [Concomitant]
     Indication: Cough
     Dosage: 5-325 MG?1 TAB BY MOUTH AS REQUIRED IN  EVERY 6 HOURS
     Route: 048
     Dates: start: 20210727
  10. insulin lispro/Humalog [Concomitant]
     Indication: Product used for unknown indication
     Dosage: STRENGTH 100 UNIT/ ML?UNIT DOSE 300 UNIT/ML
     Route: 065
     Dates: start: 20200124
  11. insulin lispro/Humalog [Concomitant]
     Dosage: STRENGTH: 100 UNIT/ML?300 UNIT EVERY 3 DAY WITH INSULIN PUMP
     Dates: start: 20210223
  12. atrovent/Ipratropium 42 mcg [Concomitant]
     Indication: Drainage
     Dosage: (0.06%) NASAL SPRAY
     Route: 045
     Dates: start: 20210818
  13. Synthroid/Levothyroxine 50 mcg [Concomitant]
     Indication: Product used for unknown indication
     Route: 065
     Dates: start: 20210524
  14. prinivil/zestril 40 mg tab [Concomitant]
     Indication: Product used for unknown indication
     Route: 048
     Dates: end: 20210921
  15. TOprol-xl/Metoprololsuccinate 25 mg [Concomitant]
     Indication: Product used for unknown indication
     Route: 065
     Dates: start: 20210524
  16. prilosec/OMEPRAZOLE 40 mg [Concomitant]
     Indication: Product used for unknown indication
     Route: 048
     Dates: start: 20210818

REACTIONS (13)
  - Vertigo [Unknown]
  - Diarrhoea [Not Recovered/Not Resolved]
  - Respiratory disorder [Recovered/Resolved]
  - COVID-19 [Unknown]
  - Diarrhoea [Recovering/Resolving]
  - Hyperlipidaemia [Not Recovered/Not Resolved]
  - Chronic kidney disease [Not Recovered/Not Resolved]
  - Hyperglycaemia [Not Recovered/Not Resolved]
  - Malaise [Unknown]
  - Fatigue [Unknown]
  - Nausea [Recovering/Resolving]
  - Eating disorder [Recovering/Resolving]
  - Drug intolerance [Recovering/Resolving]

NARRATIVE: CASE EVENT DATE: 20180208
